FAERS Safety Report 10535087 (Version 5)
Quarter: 2014Q4

REPORT INFORMATION
  Report Type: Report from Study
  Country: DE (occurrence: DE)
  Receive Date: 20141022
  Receipt Date: 20141126
  Transmission Date: 20150529
  Serious: Yes (Hospitalization)
  Sender: FDA-Public Use
  Company Number: DE-009507513-1410DEU009719

PATIENT
  Age: 67 Year
  Sex: Female
  Weight: 62.3 kg

DRUGS (13)
  1. TRAMAL [Concomitant]
     Active Substance: TRAMADOL
     Indication: CHEST PAIN
     Dosage: 25 DROPS, ONCE
     Route: 048
     Dates: start: 20141008, end: 20141008
  2. PROPOFOL. [Concomitant]
     Active Substance: PROPOFOL
     Indication: ENDOSCOPY UPPER GASTROINTESTINAL TRACT
     Dosage: 100 MG, ONCE
     Route: 042
     Dates: start: 20141007, end: 20141007
  3. OXIS [Concomitant]
     Active Substance: FORMOTEROL FUMARATE
     Indication: CHRONIC OBSTRUCTIVE PULMONARY DISEASE
     Dosage: 12 MICROGRAM, QD, INHALANT
     Route: 055
     Dates: start: 201101
  4. DIPYRONE [Concomitant]
     Active Substance: DIPYRONE
     Indication: PAIN
     Dosage: 30 DROPS, TID
     Route: 048
     Dates: start: 20141007, end: 20141007
  5. NITROSPRAY [Concomitant]
     Indication: CHEST PAIN
     Dosage: 1 PUFF, ONCE
     Route: 048
     Dates: start: 20141008, end: 20141008
  6. PEMBROLIZUMAB. [Suspect]
     Active Substance: PEMBROLIZUMAB
     Indication: NON-SMALL CELL LUNG CANCER
     Dosage: 2 MG/KG, Q3W
     Route: 042
     Dates: start: 20141016, end: 20141016
  7. AMLODIPINE [Concomitant]
     Active Substance: AMLODIPINE BESYLATE
     Indication: HYPERTENSION
     Dosage: 5 MG, QD
     Route: 048
     Dates: start: 20140906, end: 20141018
  8. PANTOZOL [Concomitant]
     Active Substance: PANTOPRAZOLE SODIUM
     Indication: PROPHYLAXIS
     Dosage: 40 MG, QD
     Route: 048
     Dates: start: 20141010
  9. PANTOZOL [Concomitant]
     Active Substance: PANTOPRAZOLE SODIUM
     Indication: VOMITING
     Dosage: 40 MG, BID
     Route: 048
     Dates: start: 20140827, end: 20141009
  10. PEMBROLIZUMAB. [Suspect]
     Active Substance: PEMBROLIZUMAB
     Dosage: 2 MG/KG, Q3W
     Route: 042
     Dates: start: 20141106
  11. DIPYRONE [Concomitant]
     Active Substance: DIPYRONE
     Indication: PAIN
     Dosage: 40 DROPS, QID
     Route: 048
     Dates: start: 20141008, end: 20141016
  12. JODID [Concomitant]
     Active Substance: IODINE
     Indication: HYPOTHYROIDISM
     Dosage: 200 MICROGRAM, QD
     Route: 048
     Dates: start: 199401
  13. SEEBRI [Concomitant]
     Active Substance: GLYCOPYRRONIUM
     Indication: CHRONIC OBSTRUCTIVE PULMONARY DISEASE
     Dosage: 44.0 MICROGRAM, QD, INHALANT
     Route: 055
     Dates: start: 201101

REACTIONS (1)
  - Atrial fibrillation [Recovered/Resolved]

NARRATIVE: CASE EVENT DATE: 20141016
